FAERS Safety Report 13953778 (Version 1)
Quarter: 2017Q3

REPORT INFORMATION
  Report Type: Spontaneous
  Country: US (occurrence: None)
  Receive Date: 20170908
  Receipt Date: 20170908
  Transmission Date: 20171128
  Serious: Yes (Hospitalization)
  Sender: FDA-Public Use
  Company Number: None

PATIENT
  Age: 57 Year
  Sex: Male
  Weight: 66.2 kg

DRUGS (4)
  1. IRINOTECAN [Suspect]
     Active Substance: IRINOTECAN
  2. 5-FU [Suspect]
     Active Substance: FLUOROURACIL
     Indication: METASTASES TO PERITONEUM
     Route: 041
     Dates: start: 20170706, end: 20170805
  3. OXALIPLATIN, 55 MG/SQ M [Suspect]
     Active Substance: OXALIPLATIN
     Indication: CHEMOTHERAPY
     Route: 033
     Dates: start: 20170706, end: 20170803
  4. FOLINIC ACID [Suspect]
     Active Substance: LEUCOVORIN

REACTIONS (5)
  - Decreased appetite [None]
  - Hypophagia [None]
  - Weight decreased [None]
  - Refusal of treatment by patient [None]
  - Oesophagitis [None]

NARRATIVE: CASE EVENT DATE: 20170828
